FAERS Safety Report 20564673 (Version 1)
Quarter: 2022Q1

REPORT INFORMATION
  Report Type: Spontaneous
  Country: CA (occurrence: CA)
  Receive Date: 20220308
  Receipt Date: 20220308
  Transmission Date: 20220423
  Serious: Yes (Death, Other)
  Sender: FDA-Public Use
  Company Number: CA-ALLERGAN-2207646US

PATIENT
  Sex: Female

DRUGS (2)
  1. MEMANTINE [Suspect]
     Active Substance: MEMANTINE
     Indication: Frontotemporal dementia
     Dosage: UNK
  2. ARICEPT [Suspect]
     Active Substance: DONEPEZIL HYDROCHLORIDE
     Indication: Frontotemporal dementia
     Dosage: UNK

REACTIONS (3)
  - Death [Fatal]
  - Drug ineffective for unapproved indication [Unknown]
  - Product use in unapproved indication [Unknown]
